FAERS Safety Report 6159527-7 (Version None)
Quarter: 2009Q2

REPORT INFORMATION
  Report Type: 
  Country: None (occurrence: None)
  Receive Date: 20090416
  Receipt Date: 20090416
  Transmission Date: 20091009
  Serious: Yes (Other)
  Sender: FDA-Public Use
  Company Number: None

PATIENT
  Age: 76 Year
  Sex: Male
  Weight: 72.5755 kg

DRUGS (1)
  1. BCG LIVE, INTRAVESICAL [Suspect]
     Indication: BLADDER CANCER
     Dates: start: 20090114, end: 20090226

REACTIONS (2)
  - ARTHRALGIA [None]
  - JOINT SWELLING [None]
